FAERS Safety Report 5593194-6 (Version None)
Quarter: 2008Q1

REPORT INFORMATION
  Report Type: 
  Country: None (occurrence: None)
  Receive Date: 20080115
  Receipt Date: 20080115
  Transmission Date: 20080703
  Serious: No
  Sender: FDA-Public Use
  Company Number: None

PATIENT
  Age: 34 Year
  Sex: Female
  Weight: 49.8957 kg

DRUGS (4)
  1. CLARINEX [Suspect]
     Indication: INFLUENZA
     Dosage: AS ON PACKAGE AS PM [ACLAGE
     Dates: start: 20060301
  2. CLARINEX [Suspect]
     Indication: MULTIPLE ALLERGIES
     Dosage: AS ON PACKAGE AS PM [ACLAGE
     Dates: start: 20060301
  3. CLARINEX [Suspect]
     Indication: INFLUENZA
     Dosage: AS ON PACKAGE AS PM [ACLAGE
     Dates: start: 20080101
  4. CLARINEX [Suspect]
     Indication: MULTIPLE ALLERGIES
     Dosage: AS ON PACKAGE AS PM [ACLAGE
     Dates: start: 20080101

REACTIONS (1)
  - INCONTINENCE [None]
